FAERS Safety Report 4503778-1 (Version None)
Quarter: 2004Q3

REPORT INFORMATION
  Report Type: 
  Country: None (occurrence: None)
  Receive Date: 20040928
  Receipt Date: 20040616
  Transmission Date: 20050211
  Serious: No
  Sender: FDA-Public Use
  Company Number: 04P-163-0263912-00

PATIENT
  Age: 73 Year
  Sex: Female
  Weight: 65.7716 kg

DRUGS (5)
  1. HUMIRA [Suspect]
     Indication: RHEUMATOID ARTHRITIS
     Dosage: 40 MG, 1 IN 2 WK, SUBCUTANEOUS
     Route: 058
     Dates: start: 20040101
  2. WARFARIN SODIUM [Concomitant]
  3. DIGOXIN [Concomitant]
  4. AMOXICILLIN TRIHYDRATE [Concomitant]
  5. ACETAMINOPHEN W/ CODEINE [Concomitant]

REACTIONS (4)
  - CHEILITIS [None]
  - MOUTH HAEMORRHAGE [None]
  - ORAL SOFT TISSUE DISORDER [None]
  - PRURITUS [None]
